FAERS Safety Report 5118878-5 (Version None)
Quarter: 2006Q3

REPORT INFORMATION
  Report Type: 
  Country: None (occurrence: None)
  Receive Date: 20060929
  Receipt Date: 20060929
  Transmission Date: 20061208
  Serious: Yes (Hospitalization)
  Sender: FDA-Public Use
  Company Number: None

PATIENT
  Age: 61 Year
  Sex: Male

DRUGS (2)
  1. TRAZODONE HCL [Suspect]
     Indication: DEPRESSION
     Dosage: 50MG QD PO
     Route: 048
     Dates: start: 20060722, end: 20060725
  2. VIAGRA [Concomitant]

REACTIONS (3)
  - CORPORA CAVERNOSA SURGERY [None]
  - ERECTILE DYSFUNCTION [None]
  - PRIAPISM [None]
